FAERS Safety Report 12111655 (Version 1)
Quarter: 2016Q1

REPORT INFORMATION
  Report Type: Spontaneous
  Country: US (occurrence: US)
  Receive Date: 20160224
  Receipt Date: 20160224
  Transmission Date: 20160526
  Serious: Yes (Other)
  Sender: FDA-Public Use
  Company Number: US-JAZZ-2015-US-020594

PATIENT
  Age: 50 Year
  Sex: Female

DRUGS (2)
  1. PRIALT [Suspect]
     Active Substance: ZICONOTIDE ACETATE
     Indication: PAIN
     Dosage: UNK ?G, QH
     Route: 037
  2. PRIALT [Suspect]
     Active Substance: ZICONOTIDE ACETATE
     Dosage: 0.021 ?G, QH
     Route: 037

REACTIONS (11)
  - Device issue [Unknown]
  - Intervertebral disc protrusion [Unknown]
  - Angioedema [Unknown]
  - Spondylolisthesis [Unknown]
  - Stenosis [Unknown]
  - Restless legs syndrome [Unknown]
  - Unevaluable event [Unknown]
  - Fibrin D dimer increased [Unknown]
  - Intervertebral disc degeneration [Unknown]
  - Joint swelling [Unknown]
  - Peripheral swelling [Unknown]

NARRATIVE: CASE EVENT DATE: 2014
